FAERS Safety Report 16403794 (Version 1)
Quarter: 2019Q2

REPORT INFORMATION
  Report Type: Spontaneous
  Country: US (occurrence: US)
  Receive Date: 20190607
  Receipt Date: 20190607
  Transmission Date: 20190711
  Serious: Yes (Other)
  Sender: FDA-Public Use
  Company Number: US-BAYER-2019-106614

PATIENT
  Age: 2 Decade
  Sex: Female

DRUGS (1)
  1. KYLEENA [Suspect]
     Active Substance: LEVONORGESTREL
     Indication: CONTRACEPTION
     Dosage: 17.5 MCG/24HR, CONT
     Route: 015
     Dates: start: 2017

REACTIONS (5)
  - Genital haemorrhage [None]
  - Dyspareunia [None]
  - Urinary tract infection [None]
  - Vulvovaginal pain [None]
  - Genital discharge [None]

NARRATIVE: CASE EVENT DATE: 2019
